FAERS Safety Report 23800842 (Version 1)
Quarter: 2024Q2

REPORT INFORMATION
  Report Type: Spontaneous
  Country: IL (occurrence: IL)
  Receive Date: 20240430
  Receipt Date: 20240430
  Transmission Date: 20240716
  Serious: Yes (Other)
  Sender: FDA-Public Use
  Company Number: IL-BAUSCHBL-2024BNL026037

PATIENT
  Sex: Female

DRUGS (4)
  1. BETIMOL [Suspect]
     Active Substance: TIMOLOL
     Indication: Open angle glaucoma
     Route: 061
  2. BETIMOL [Suspect]
     Active Substance: TIMOLOL
  3. BRINZOLAMIDE [Suspect]
     Active Substance: BRINZOLAMIDE
     Indication: Open angle glaucoma
     Route: 061
  4. BRIMONIDINE TARTRATE [Suspect]
     Active Substance: BRIMONIDINE TARTRATE
     Indication: Open angle glaucoma
     Route: 061

REACTIONS (1)
  - Treatment noncompliance [Unknown]
